FAERS Safety Report 14533902 (Version 1)
Quarter: 2018Q1

REPORT INFORMATION
  Report Type: Spontaneous
  Country: US (occurrence: US)
  Receive Date: 20180215
  Receipt Date: 20180215
  Transmission Date: 20180509
  Serious: Yes (Death)
  Sender: FDA-Public Use
  Company Number: US-OTSUKA-US-2014-11170

PATIENT

DRUGS (2)
  1. CLOFARABINE. [Suspect]
     Active Substance: CLOFARABINE
     Indication: STEM CELL TRANSPLANT
     Dosage: 40 MG/M2, (OVER 1 HR ON DAYS -6 TO -2)
     Route: 042
  2. BUSULFEX [Suspect]
     Active Substance: BUSULFAN
     Indication: STEM CELL TRANSPLANT
     Dosage: 3.2 MG/KG, QD (DAYS -5 TO -2)
     Route: 042

REACTIONS (1)
  - Pulmonary alveolar haemorrhage [Fatal]
